FAERS Safety Report 20200618 (Version 1)
Quarter: 2021Q4

REPORT INFORMATION
  Report Type: Spontaneous
  Country: TW (occurrence: TW)
  Receive Date: 20211217
  Receipt Date: 20211217
  Transmission Date: 20220303
  Serious: Yes (Hospitalization, Other)
  Sender: FDA-Public Use
  Company Number: TW-LUPIN PHARMACEUTICALS INC.-2021-25167

PATIENT
  Age: 17 Year
  Sex: Male

DRUGS (5)
  1. IMATINIB MESYLATE [Suspect]
     Active Substance: IMATINIB MESYLATE
     Indication: Chronic myeloid leukaemia
     Dosage: 400 MILLIGRAM, QD (DISCONTINUED FOR 8 DAYS AND THEN RE-INITIATED)
     Route: 065
  2. IMATINIB MESYLATE [Suspect]
     Active Substance: IMATINIB MESYLATE
     Dosage: 600 MILLIGRAM, QD (AFTER TWO YEARS EIGHT MONTHS FROM THE START OF IMATINIB ADMINISTRATION)
     Route: 065
  3. IMATINIB MESYLATE [Suspect]
     Active Substance: IMATINIB MESYLATE
     Dosage: 500 MILLIGRAM, QD (ADJUSTED TO 400 MILLIGRAM DAILY DUE TO GRADE 2 LEUKOPENIA AND THEN INCREASED TO 5
     Route: 065
  4. IMATINIB MESYLATE [Suspect]
     Active Substance: IMATINIB MESYLATE
     Dosage: 200 MG, QD (ADMINISTERED AGAIN AFTER SEVEN DAYS OF DISCONTINUATION)
     Route: 065
  5. IMATINIB MESYLATE [Suspect]
     Active Substance: IMATINIB MESYLATE
     Dosage: 400 MILLIGRAM, QD
     Route: 065

REACTIONS (6)
  - Pleural effusion [Recovered/Resolved]
  - Pericardial effusion [Recovered/Resolved]
  - Campylobacter infection [Recovered/Resolved]
  - Bacteraemia [Recovered/Resolved]
  - Leukopenia [Recovered/Resolved]
  - Neutropenia [Unknown]
